FAERS Safety Report 11288735 (Version 2)
Quarter: 2015Q3

REPORT INFORMATION
  Report Type: Spontaneous
  Country: FR (occurrence: FR)
  Receive Date: 20150721
  Receipt Date: 20150730
  Transmission Date: 20151125
  Serious: Yes (Other)
  Sender: FDA-Public Use
  Company Number: FR-JNJFOC-20150714568

PATIENT
  Age: 19 Year
  Sex: Male
  Weight: 58 kg

DRUGS (3)
  1. SEROPLEX [Concomitant]
     Active Substance: ESCITALOPRAM OXALATE
     Indication: DEPRESSION
     Route: 048
     Dates: start: 20140505, end: 20140731
  2. REMICADE [Suspect]
     Active Substance: INFLIXIMAB
     Indication: HIDRADENITIS
     Route: 042
     Dates: start: 20140505, end: 20140601
  3. CORTANCYL [Concomitant]
     Active Substance: PREDNISONE
     Indication: ACNE FULMINANS
     Route: 048
     Dates: start: 2009

REACTIONS (3)
  - Product use issue [Unknown]
  - Purpura [Recovered/Resolved with Sequelae]
  - Hypersensitivity vasculitis [Unknown]

NARRATIVE: CASE EVENT DATE: 20140505
